FAERS Safety Report 4937687-0 (Version None)
Quarter: 2006Q1

REPORT INFORMATION
  Report Type: 
  Country: None (occurrence: None)
  Receive Date: 20060309
  Receipt Date: 20050829
  Transmission Date: 20060701
  Serious: Yes (Hospitalization, Other)
  Sender: FDA-Public Use
  Company Number: US-MERCK-0508USA05070

PATIENT
  Age: 37 Year
  Sex: Female
  Weight: 95 kg

DRUGS (3)
  1. VIOXX [Suspect]
     Indication: NECK PAIN
     Route: 048
     Dates: start: 20010322, end: 20040801
  2. VIOXX [Suspect]
     Indication: BACK PAIN
     Route: 048
     Dates: start: 20010322, end: 20040801
  3. TYLENOL (CAPLET) [Concomitant]
     Route: 065

REACTIONS (23)
  - ABDOMINAL PAIN [None]
  - ANXIETY [None]
  - ARTERIAL OCCLUSIVE DISEASE [None]
  - ASTHENIA [None]
  - CHEST PAIN [None]
  - CORONARY ARTERY DISEASE [None]
  - DEPRESSION [None]
  - EUSTACHIAN TUBE DYSFUNCTION [None]
  - FOOD INTOLERANCE [None]
  - HAEMATOCRIT DECREASED [None]
  - HAEMORRHOIDAL HAEMORRHAGE [None]
  - HEPATIC ENZYME INCREASED [None]
  - HYPERLIPIDAEMIA [None]
  - HYPERTRIGLYCERIDAEMIA [None]
  - MUSCULOSKELETAL CHEST PAIN [None]
  - NAUSEA [None]
  - PHOTOSENSITIVITY REACTION [None]
  - PNEUMONIA [None]
  - PSORIASIS [None]
  - PULMONARY EMBOLISM [None]
  - SLEEP APNOEA SYNDROME [None]
  - UPPER RESPIRATORY TRACT INFECTION [None]
  - VOMITING [None]
